FAERS Safety Report 4657320-5 (Version None)
Quarter: 2005Q2

REPORT INFORMATION
  Report Type: 
  Country: None (occurrence: None)
  Receive Date: 20050408
  Receipt Date: 20041209
  Transmission Date: 20051028
  Serious: No
  Sender: FDA-Public Use
  Company Number: 235970K04USA

PATIENT
  Age: 55 Year
  Sex: Female

DRUGS (3)
  1. REBIF [Suspect]
     Indication: MULTIPLE SCLEROSIS
     Dosage: 22 MCG,3 IN 1 WEEKS SUBCUTANEOUS, 44 MCG3 IN 1 WEEKS SUBCUTANEOUS
     Dates: start: 20040409, end: 20040101
  2. REBIF [Suspect]
     Indication: MULTIPLE SCLEROSIS
     Dosage: 22 MCG,3 IN 1 WEEKS SUBCUTANEOUS, 44 MCG3 IN 1 WEEKS SUBCUTANEOUS
     Dates: start: 20040101
  3. LIDOCAINE [Concomitant]

REACTIONS (8)
  - ASTHENIA [None]
  - BALANCE DISORDER [None]
  - CHILLS [None]
  - INFLUENZA LIKE ILLNESS [None]
  - INJECTION SITE ERYTHEMA [None]
  - INJECTION SITE REACTION [None]
  - PAIN [None]
  - URTICARIA [None]
